FAERS Safety Report 4807900-9 (Version None)
Quarter: 2005Q4

REPORT INFORMATION
  Report Type: 
  Country: None (occurrence: None)
  Receive Date: 20051021
  Receipt Date: 20051006
  Transmission Date: 20060501
  Serious: Yes (Death)
  Sender: FDA-Public Use
  Company Number: 2005S1009916

PATIENT
  Age: 47 Year
  Sex: Male

DRUGS (9)
  1. CLOZAPINE [Suspect]
     Indication: SCHIZOPHRENIA
     Dosage: 50 MG;BID;ORAL
     Route: 048
     Dates: end: 20050930
  2. OLANZAPINE [Concomitant]
  3. LORAZEPAM [Concomitant]
  4. VALPROATE SODIUM [Concomitant]
  5. CLONAZEPAM [Concomitant]
  6. LEVOFLOXACIN [Concomitant]
  7. METFORMIN HYDROCHLORIDE [Concomitant]
  8. ROSIGLITAZONE MALEATE [Concomitant]
  9. SIMVASTATIN [Concomitant]

REACTIONS (2)
  - AGGRESSION [None]
  - REFUSAL OF TREATMENT BY PATIENT [None]
